FAERS Safety Report 8178094-X (Version None)
Quarter: 2012Q1

REPORT INFORMATION
  Report Type: 
  Country: None (occurrence: None)
  Receive Date: 20120301
  Receipt Date: 20120227
  Transmission Date: 20120608
  Serious: No
  Sender: FDA-Public Use
  Company Number: US-TEVA-325138USA

PATIENT
  Sex: Male

DRUGS (7)
  1. ATENOLOL [Concomitant]
     Indication: HYPERTENSION
     Dosage: 12.5 MILLIGRAM;
     Route: 048
  2. AZILECT [Suspect]
     Indication: PARKINSON'S DISEASE
     Dosage: .5 MILLIGRAM;
     Route: 048
     Dates: start: 20120223, end: 20120226
  3. SINEMET [Concomitant]
     Indication: PARKINSON'S DISEASE
     Dosage: 25MG/100 MG
     Route: 048
  4. VITACAL                            /01535001/ [Concomitant]
     Indication: MEDICAL DIET
     Route: 048
  5. ACETYLSALICYLIC ACID SRT [Concomitant]
     Route: 048
  6. DIAZEPAM [Concomitant]
     Route: 048
  7. SIMVASTATIN [Concomitant]
     Indication: HYPERCHOLESTEROLAEMIA
     Route: 048

REACTIONS (2)
  - DIZZINESS [None]
  - HEADACHE [None]
